FAERS Safety Report 13961323 (Version 2)
Quarter: 2017Q4

REPORT INFORMATION
  Report Type: Spontaneous
  Country: BR (occurrence: BR)
  Receive Date: 20170912
  Receipt Date: 20171030
  Transmission Date: 20180320
  Serious: Yes (Other)
  Sender: FDA-Public Use
  Company Number: BR-AMGEN-BRASP2017135100

PATIENT
  Age: 81 Year
  Sex: Female
  Weight: 53 kg

DRUGS (2)
  1. URO VAXOM [Suspect]
     Active Substance: ESCHERICHIA COLI
     Indication: URINARY TRACT INFECTION
     Dosage: UNK
     Route: 065
  2. PROLIA [Suspect]
     Active Substance: DENOSUMAB
     Indication: OSTEOPOROSIS
     Dosage: 60 MG, Q6MO
     Route: 065
     Dates: start: 201509

REACTIONS (13)
  - Hypercalcaemia [Unknown]
  - Diverticulum [Unknown]
  - Weight decreased [Unknown]
  - Calcium deficiency [Unknown]
  - Gastrointestinal neoplasm [Unknown]
  - Pruritus generalised [Unknown]
  - Swollen tongue [Unknown]
  - Pulmonary hypertension [Not Recovered/Not Resolved]
  - Intestinal fibrosis [Unknown]
  - Sensitivity to weather change [Unknown]
  - Speech disorder [Unknown]
  - Malaise [Unknown]
  - Urinary tract infection [Not Recovered/Not Resolved]

NARRATIVE: CASE EVENT DATE: 2017
